FAERS Safety Report 17176536 (Version 1)
Quarter: 2019Q4

REPORT INFORMATION
  Report Type: Spontaneous
  Country: NZ (occurrence: NZ)
  Receive Date: 20191219
  Receipt Date: 20191219
  Transmission Date: 20200122
  Serious: Yes (Other)
  Sender: FDA-Public Use
  Company Number: NZ-ROCHE-2459906

PATIENT
  Sex: Male

DRUGS (1)
  1. ESBRIET [Suspect]
     Active Substance: PIRFENIDONE
     Indication: IDIOPATHIC PULMONARY FIBROSIS
     Route: 048
     Dates: start: 20191012

REACTIONS (6)
  - Ascites [Unknown]
  - Eating disorder [Unknown]
  - Ill-defined disorder [Unknown]
  - Swelling [Unknown]
  - Discomfort [Recovering/Resolving]
  - Abdominal distension [Not Recovered/Not Resolved]
